FAERS Safety Report 10258194 (Version 2)
Quarter: 2014Q2

REPORT INFORMATION
  Report Type: Report from Study
  Country: FR (occurrence: FR)
  Receive Date: 20140625
  Receipt Date: 20140625
  Transmission Date: 20141212
  Serious: Yes (Death)
  Sender: FDA-Public Use
  Company Number: FR-PFIZER INC-2014155002

PATIENT
  Age: 36 Year
  Sex: Male
  Weight: 66 kg

DRUGS (4)
  1. INLYTA [Suspect]
     Indication: METASTATIC RENAL CELL CARCINOMA
     Dosage: 7 MG, 2X/DAY
     Dates: start: 20130502, end: 20140526
  2. INLYTA [Suspect]
     Dosage: 10 MG, 2X/DAY
     Dates: start: 20140527
  3. INLYTA [Suspect]
     Dosage: 7 MG, 2X/DAY
     Dates: start: 20140602, end: 20140602
  4. INLYTA [Suspect]
     Dosage: 5 MG, 2X/DAY
     Dates: start: 20140602

REACTIONS (4)
  - Death [Fatal]
  - Disease progression [Unknown]
  - Metastatic renal cell carcinoma [Unknown]
  - Drug intolerance [Unknown]
